FAERS Safety Report 7597189-2 (Version None)
Quarter: 2011Q3

REPORT INFORMATION
  Report Type: 
  Country: None (occurrence: None)
  Receive Date: 20110708
  Receipt Date: 20100809
  Transmission Date: 20111222
  Serious: No
  Sender: FDA-Public Use
  Company Number: US-GLAXOSMITHKLINE-A0874615A

PATIENT
  Age: 64 Year
  Sex: Female

DRUGS (9)
  1. AMLODIPINE [Concomitant]
  2. METFORMIN HCL [Concomitant]
  3. FLOVENT [Suspect]
     Indication: ASTHMA
     Dosage: 2PUFF TWICE PER DAY
     Route: 055
     Dates: start: 20050101
  4. GLIPIZIDE [Concomitant]
  5. LIPITOR [Concomitant]
  6. BENICAR [Concomitant]
  7. PROAIR HFA [Concomitant]
  8. ALBUTEROL SULFATE AUTOHALER [Concomitant]
  9. AGGRENOX [Concomitant]

REACTIONS (8)
  - DRUG INEFFECTIVE [None]
  - PRODUCT QUALITY ISSUE [None]
  - APHONIA [None]
  - ILL-DEFINED DISORDER [None]
  - COUGH [None]
  - ADVERSE EVENT [None]
  - BRONCHIAL HYPERREACTIVITY [None]
  - DYSPNOEA [None]
